FAERS Safety Report 15956608 (Version 3)
Quarter: 2020Q1

REPORT INFORMATION
  Report Type: Spontaneous
  Country: US (occurrence: US)
  Receive Date: 20190213
  Receipt Date: 20200205
  Transmission Date: 20200409
  Serious: Yes (Life-Threatening, Other)
  Sender: FDA-Public Use
  Company Number: US-PFIZER INC-2019058655

PATIENT
  Age: 5 Month
  Sex: Female
  Weight: .71 kg

DRUGS (4)
  1. HEPARIN SODIUM. [Suspect]
     Active Substance: HEPARIN SODIUM
     Indication: RENAL VEIN THROMBOSIS
     Dosage: UNK (10 UNITS/ KG/HR)
     Route: 041
  2. HEPARIN SODIUM. [Suspect]
     Active Substance: HEPARIN SODIUM
     Indication: VENA CAVA THROMBOSIS
     Dosage: UNK (20 UNITS/KG/HR)
     Route: 041
  3. HEPARIN SODIUM. [Suspect]
     Active Substance: HEPARIN SODIUM
     Indication: RENAL ARTERY THROMBOSIS
     Dosage: UNK (20 UNITS/KG/HR)
     Route: 041
  4. HEPARIN SODIUM. [Suspect]
     Active Substance: HEPARIN SODIUM
     Dosage: UNK (34 UNITS/KG/HR)
     Route: 041

REACTIONS (2)
  - Haemodynamic instability [Not Recovered/Not Resolved]
  - Coagulopathy [Not Recovered/Not Resolved]
